FAERS Safety Report 9779498 (Version 3)
Quarter: 2014Q1

REPORT INFORMATION
  Report Type: Spontaneous
  Country: JP (occurrence: JP)
  Receive Date: 20131223
  Receipt Date: 20140305
  Transmission Date: 20141002
  Serious: Yes (Life-Threatening)
  Sender: FDA-Public Use
  Company Number: JP-CUBIST PHARMACEUTICAL, INC.-2013CBST001402

PATIENT
  Sex: 0

DRUGS (10)
  1. CUBICIN [Suspect]
     Indication: STAPHYLOCOCCAL INFECTION
     Dosage: 350 MG, ONCE A DAY
     Route: 041
     Dates: start: 20131129, end: 20131206
  2. MEROPEN [Suspect]
     Indication: STAPHYLOCOCCAL SEPSIS
     Dosage: 0.5 G, ONCE A DAY
     Route: 041
     Dates: start: 20131127, end: 20131206
  3. FUNGUARD [Suspect]
     Indication: FUNGAL INFECTION
     Dosage: 150 MG, ONCE DAILY
     Route: 041
     Dates: start: 201311, end: 20131206
  4. TEICOPLANIN [Concomitant]
     Indication: STAPHYLOCOCCAL INFECTION
     Dosage: 400 MG, ONCE DAILY
     Route: 041
     Dates: start: 20131127, end: 20131128
  5. BFLUID [Concomitant]
     Indication: MEDICAL DIET
     Dosage: 500 ML, ONCE DAILY
     Route: 041
     Dates: start: 20131129, end: 20140110
  6. LASIX                              /00032601/ [Concomitant]
     Indication: PRODUCT USED FOR UNKNOWN INDICATION
     Dosage: 40 MG, ONCE DAILY
     Route: 048
  7. MIYA BM [Concomitant]
     Indication: PRODUCT USED FOR UNKNOWN INDICATION
     Dosage: 1 DF, TID
     Route: 048
  8. TAKEPRON [Concomitant]
     Indication: PRODUCT USED FOR UNKNOWN INDICATION
     Dosage: 15 MG, ONCE DAILY
     Route: 048
  9. MUCODYNE K [Concomitant]
     Indication: PRODUCT USED FOR UNKNOWN INDICATION
     Dosage: 500 MG, TID
     Route: 048
  10. MUCOSOLVAN (LASOLVAN) [Concomitant]
     Indication: PRODUCT USED FOR UNKNOWN INDICATION
     Dosage: 15 MG, TID
     Route: 048

REACTIONS (1)
  - Bone marrow failure [Recovered/Resolved]
